FAERS Safety Report 13342770 (Version 1)
Quarter: 2017Q1

REPORT INFORMATION
  Report Type: Spontaneous
  Country: FR (occurrence: FR)
  Receive Date: 20170316
  Receipt Date: 20170316
  Transmission Date: 20170428
  Serious: Yes (Death)
  Sender: FDA-Public Use
  Company Number: FR-PFIZER INC-2017109938

PATIENT
  Age: 74 Year
  Sex: Female

DRUGS (6)
  1. COUMADINE [Concomitant]
     Active Substance: WARFARIN SODIUM
     Dosage: 1 MG, 1X/DAY
  2. SIVEXTRO [Suspect]
     Active Substance: TEDIZOLID PHOSPHATE
     Indication: BACTERIAL INFECTION
     Dosage: 200 MG, DAILY
     Route: 048
     Dates: start: 20170223, end: 20170305
  3. AMIKACIN SULFATE. [Suspect]
     Active Substance: AMIKACIN SULFATE
     Indication: BACTERIAL INFECTION
     Dosage: 500 MG, DAILY
     Route: 041
     Dates: start: 20170223, end: 20170305
  4. BISOPROLOL [Concomitant]
     Active Substance: BISOPROLOL
     Dosage: 2.5 MG, 1X/DAY
  5. FUROSEMIDE. [Concomitant]
     Active Substance: FUROSEMIDE
     Dosage: 40 MG, 1X/DAY (IN THE MORNING)
  6. TYGACIL [Suspect]
     Active Substance: TIGECYCLINE
     Indication: BACTERIAL INFECTION
     Dosage: 50 MG, 2X/DAY
     Route: 041
     Dates: start: 20170223, end: 20170305

REACTIONS (1)
  - Lactic acidosis [Fatal]

NARRATIVE: CASE EVENT DATE: 20170305
